FAERS Safety Report 6209038-5 (Version None)
Quarter: 2009Q2

REPORT INFORMATION
  Report Type: 
  Country: None (occurrence: None)
  Receive Date: 20090529
  Receipt Date: 20090514
  Transmission Date: 20091009
  Serious: Yes (Hospitalization)
  Sender: FDA-Public Use
  Company Number: BR-PFIZER INC-2009181291

PATIENT
  Age: 56 Year

DRUGS (35)
  1. ANIDULAFUNGIN [Suspect]
     Indication: SYSTEMIC CANDIDA
     Dosage: 100 MG, 1X/DAY
     Route: 042
     Dates: start: 20090220, end: 20090312
  2. SOLU-CORTEF [Concomitant]
     Dosage: UNK
     Route: 042
     Dates: start: 20090302, end: 20090319
  3. TERBUTALINE SULFATE [Concomitant]
     Dosage: UNK
     Route: 045
     Dates: start: 20090302, end: 20090302
  4. SULFADIAZINE [Concomitant]
     Dosage: UNK
     Route: 061
     Dates: start: 20090220, end: 20090307
  5. DERMADEX [Concomitant]
     Dosage: UNK
     Route: 061
     Dates: start: 20090218, end: 20090221
  6. DIAZEPAM [Concomitant]
     Dosage: UNK
     Route: 042
     Dates: start: 20090219, end: 20090219
  7. DIAZEPAM [Concomitant]
     Dosage: UNK
     Route: 042
     Dates: start: 20090311, end: 20090312
  8. FUROSEMIDE [Concomitant]
     Dosage: UNK
     Dates: start: 20090220, end: 20090315
  9. OMEPRAZOLE [Concomitant]
     Dosage: UNK
     Route: 042
     Dates: start: 20090206, end: 20090327
  10. OMEPRAZOLE [Concomitant]
     Dosage: UNK
     Route: 042
     Dates: start: 20090403, end: 20090406
  11. BROMOPRIDE [Concomitant]
     Dosage: UNK
     Route: 042
     Dates: start: 20090208
  12. HIRUDOID [Concomitant]
     Dosage: UNK
     Route: 061
     Dates: start: 20090228, end: 20090323
  13. SACCHAROMYCES BOULARDII [Concomitant]
     Dosage: UNK
     Route: 048
     Dates: start: 20090301, end: 20090323
  14. LOPERAMIDE [Concomitant]
     Dosage: UNK
     Route: 048
     Dates: start: 20090301, end: 20090314
  15. MEROPENEM [Concomitant]
     Dosage: UNK
     Route: 042
     Dates: start: 20090304, end: 20090319
  16. THEOPHYLLINE [Concomitant]
     Dosage: UNK
     Route: 048
     Dates: start: 20090304, end: 20090328
  17. RISPERIDONE [Concomitant]
     Dosage: UNK
     Route: 048
     Dates: start: 20090304, end: 20090323
  18. MIDAZOLAM [Concomitant]
     Dosage: UNK
     Route: 042
     Dates: start: 20090302, end: 20090303
  19. MIDAZOLAM [Concomitant]
     Dosage: UNK
     Route: 042
     Dates: start: 20090311, end: 20090311
  20. VECURONIUM BROMIDE [Concomitant]
     Dosage: UNK
     Route: 042
     Dates: start: 20090302, end: 20090303
  21. DIPIRONE [Concomitant]
     Dosage: UNK
     Route: 042
     Dates: start: 20090129, end: 20090327
  22. DIPIRONE [Concomitant]
     Dosage: UNK
     Route: 042
     Dates: start: 20090402, end: 20090406
  23. TAZOCIN [Concomitant]
     Dosage: UNK
     Route: 042
     Dates: start: 20090210, end: 20090222
  24. TRIAMCINOLONE ACETONIDE [Concomitant]
     Dosage: UNK
     Route: 061
     Dates: start: 20090308, end: 20090327
  25. HIDANTAL [Concomitant]
     Dosage: UNK
     Route: 042
     Dates: start: 20090131
  26. ADALAT [Concomitant]
     Dosage: UNK
     Dates: start: 20090309, end: 20090328
  27. CAPTOPRIL [Concomitant]
     Dosage: UNK
     Dates: start: 20090311, end: 20090312
  28. CAPTOPRIL [Concomitant]
     Dosage: UNK
     Dates: start: 20090402
  29. TEGRETOL [Concomitant]
     Dosage: UNK
     Dates: start: 20090311
  30. CLEXANE [Concomitant]
     Dosage: UNK
     Route: 058
     Dates: start: 20090315, end: 20090327
  31. VANCOMYCIN [Concomitant]
     Dosage: UNK
     Route: 042
     Dates: start: 20090326, end: 20090328
  32. RANITIDINE [Concomitant]
     Dosage: UNK
     Dates: start: 20090402, end: 20090403
  33. PLAMET [Concomitant]
     Dosage: UNK
     Route: 042
     Dates: start: 20090403, end: 20090405
  34. ESOMEPRAZOLE [Concomitant]
     Dosage: UNK
     Dates: start: 20090404, end: 20090406
  35. CIPROFLOXACIN [Concomitant]
     Dosage: UNK
     Route: 048
     Dates: start: 20090404, end: 20090413

REACTIONS (2)
  - PNEUMONIA [None]
  - PYREXIA [None]
